FAERS Safety Report 15776301 (Version 2)
Quarter: 2019Q1

REPORT INFORMATION
  Report Type: Spontaneous
  Country: US (occurrence: US)
  Receive Date: 20181231
  Receipt Date: 20190119
  Transmission Date: 20190417
  Serious: Yes (Other)
  Sender: FDA-Public Use
  Company Number: US-TEVA-2018-US-993694

PATIENT
  Sex: Female

DRUGS (3)
  1. CLONAZEPAM TEVA [Suspect]
     Active Substance: CLONAZEPAM
     Indication: EPILEPSY
     Route: 048
  2. OXTELLAR XR [Concomitant]
     Active Substance: OXCARBAZEPINE
  3. VERAPAMIL [Concomitant]
     Active Substance: VERAPAMIL HYDROCHLORIDE

REACTIONS (6)
  - Partial seizures [Unknown]
  - Product label issue [Unknown]
  - Somnolence [Unknown]
  - Aura [Unknown]
  - Product substitution issue [Unknown]
  - Reaction to excipient [Recovered/Resolved]
